FAERS Safety Report 22120655 (Version 1)
Quarter: 2023Q1

REPORT INFORMATION
  Report Type: Spontaneous
  Country: GB (occurrence: GB)
  Receive Date: 20230321
  Receipt Date: 20230321
  Transmission Date: 20230418
  Serious: Yes (Hospitalization, Other)
  Sender: FDA-Public Use
  Company Number: GB-SA-2023SA087081

PATIENT
  Age: 56 Year
  Sex: Male

DRUGS (1)
  1. RASBURICASE [Suspect]
     Active Substance: RASBURICASE
     Indication: Prophylaxis

REACTIONS (5)
  - Acute kidney injury [Unknown]
  - Jaundice [Unknown]
  - Chromaturia [Unknown]
  - Haemolysis [Unknown]
  - Methaemoglobinaemia [Unknown]
